FAERS Safety Report 17213611 (Version 2)
Quarter: 2020Q1

REPORT INFORMATION
  Report Type: Spontaneous
  Country: BR (occurrence: BR)
  Receive Date: 20191230
  Receipt Date: 20200116
  Transmission Date: 20200409
  Serious: Yes (Other)
  Sender: FDA-Public Use
  Company Number: BR-PFIZER INC-2013284798

PATIENT
  Age: 16 Year
  Sex: Male
  Weight: 28 kg

DRUGS (13)
  1. DEPURA [Concomitant]
     Active Substance: CHOLECALCIFEROL
     Indication: VITAMIN SUPPLEMENTATION
     Dosage: UNK
  2. GENOTROPIN [Suspect]
     Active Substance: SOMATROPIN
     Dosage: UNK
  3. HYDROXYUREA. [Concomitant]
     Active Substance: HYDROXYUREA
     Indication: SICKLE CELL ANAEMIA
     Dosage: 1 DF, 1X/DAY
     Dates: start: 2013
  4. GENOTROPIN [Suspect]
     Active Substance: SOMATROPIN
     Indication: BODY HEIGHT BELOW NORMAL
     Dosage: UNK
  5. GENOTROPIN [Suspect]
     Active Substance: SOMATROPIN
     Indication: GROWTH HORMONE DEFICIENCY
     Dosage: UNK
     Dates: start: 201801
  6. FOLIC ACID. [Concomitant]
     Active Substance: FOLIC ACID
     Indication: SICKLE CELL ANAEMIA
     Dosage: 1 DF, 1 CP 1X/DAY
     Dates: start: 2000
  7. PURAN [Concomitant]
     Active Substance: LEVOTHYROXINE SODIUM
     Indication: HYPERTHYROIDISM
  8. OMNARIS [Concomitant]
     Active Substance: CICLESONIDE
     Indication: ADENOIDITIS
     Dosage: UNK, 1X/DAY
  9. PURAN [Concomitant]
     Active Substance: LEVOTHYROXINE SODIUM
     Indication: THYROID DISORDER
     Dosage: 25 AND 50MG 1 AND HALF ONCE A DAY
     Dates: start: 2008
  10. OMNARIS [Concomitant]
     Active Substance: CICLESONIDE
     Indication: RHINITIS
  11. GENOTROPIN [Suspect]
     Active Substance: SOMATROPIN
     Indication: GROWTH RETARDATION
     Dosage: 1.8 MG, 1X/DAY
     Route: 058
     Dates: start: 20130910
  12. HYDROXYUREA. [Concomitant]
     Active Substance: HYDROXYUREA
     Indication: INTRACRANIAL ANEURYSM
     Dosage: UNK
     Dates: start: 2017
  13. ENALAPRIL [Concomitant]
     Active Substance: ENALAPRIL
     Dosage: UNK

REACTIONS (6)
  - Nephrolithiasis [Not Recovered/Not Resolved]
  - Snoring [Unknown]
  - Drug ineffective [Unknown]
  - Wrong technique in product usage process [Recovered/Resolved]
  - Multiple use of single-use product [Recovered/Resolved]
  - Adenoidal hypertrophy [Unknown]

NARRATIVE: CASE EVENT DATE: 20130910
